FAERS Safety Report 14336779 (Version 1)
Quarter: 2017Q4

REPORT INFORMATION
  Report Type: Report from Study
  Country: FR (occurrence: FR)
  Receive Date: 20171229
  Receipt Date: 20171229
  Transmission Date: 20180321
  Serious: Yes (Death, Disabling, Other)
  Sender: FDA-Public Use
  Company Number: FR-TEVA-2017-FR-841749

PATIENT
  Age: 89 Year
  Sex: Female

DRUGS (9)
  1. 5-FU [Suspect]
     Active Substance: FLUOROURACIL
     Route: 040
     Dates: start: 20170627, end: 20170627
  2. 5-FU [Suspect]
     Active Substance: FLUOROURACIL
     Indication: COLORECTAL CANCER METASTATIC
     Route: 040
     Dates: start: 20170627, end: 20170627
  3. 5-FU [Suspect]
     Active Substance: FLUOROURACIL
     Route: 040
     Dates: start: 20170818, end: 20170818
  4. FOLINIC ACID [Suspect]
     Active Substance: LEUCOVORIN
     Indication: COLORECTAL CANCER METASTATIC
     Route: 040
     Dates: start: 20170818, end: 20170818
  5. AFLIBERCEPT [Suspect]
     Active Substance: AFLIBERCEPT
     Indication: COLORECTAL CANCER METASTATIC
     Route: 042
     Dates: start: 20170818, end: 20170818
  6. AFLIBERCEPT [Suspect]
     Active Substance: AFLIBERCEPT
     Route: 042
     Dates: start: 20170627, end: 20170627
  7. 5-FU [Suspect]
     Active Substance: FLUOROURACIL
     Route: 040
     Dates: start: 20170818, end: 20170818
  8. INSULIN [Concomitant]
     Active Substance: INSULIN NOS
     Indication: TYPE 1 DIABETES MELLITUS
     Route: 065
     Dates: end: 20170904
  9. FOLINIC ACID [Suspect]
     Active Substance: LEUCOVORIN
     Route: 040
     Dates: start: 20170627, end: 20170627

REACTIONS (4)
  - Catheter site haematoma [Recovering/Resolving]
  - General physical health deterioration [Fatal]
  - Device related infection [Recovering/Resolving]
  - Cerebrovascular accident [Fatal]

NARRATIVE: CASE EVENT DATE: 20170711
